FAERS Safety Report 4512585-5 (Version None)
Quarter: 2004Q4

REPORT INFORMATION
  Report Type: 
  Country: None (occurrence: None)
  Receive Date: 20041129
  Receipt Date: 20040930
  Transmission Date: 20050328
  Serious: Yes (Life-Threatening, Hospitalization, Other)
  Sender: FDA-Public Use
  Company Number: US-MERCK-0410USA00040

PATIENT
  Age: 44 Year
  Sex: Female
  Weight: 108 kg

DRUGS (4)
  1. VIOXX [Suspect]
     Indication: BACK PAIN
     Route: 048
     Dates: start: 20020101, end: 20030101
  2. VIOXX [Suspect]
     Indication: PELVIC PAIN
     Route: 048
     Dates: start: 20020101, end: 20030101
  3. NEXIUM [Concomitant]
     Route: 065
  4. TRIPHASIL-21 [Concomitant]
     Route: 065

REACTIONS (4)
  - ACCELERATED HYPERTENSION [None]
  - BLOOD PRESSURE INCREASED [None]
  - GALLBLADDER DISORDER [None]
  - PROCEDURAL COMPLICATION [None]
